FAERS Safety Report 12311281 (Version 1)
Quarter: 2016Q2

REPORT INFORMATION
  Report Type: Spontaneous
  Country: US (occurrence: US)
  Receive Date: 20160427
  Receipt Date: 20160427
  Transmission Date: 20160815
  Serious: Yes (Hospitalization)
  Sender: FDA-Public Use
  Company Number: US-LPDUSPRD-20160359

PATIENT
  Age: 58 Year
  Sex: Male

DRUGS (1)
  1. DEXAMETHASONE SODIUM PHOSPHATE INJECTION, USP (4901-25) [Suspect]
     Active Substance: DEXAMETHASONE SODIUM PHOSPHATE
     Dosage: 40MG/DAY/FOR 4 DAYS, Q3WKS
     Route: 065

REACTIONS (2)
  - Mania [Recovered/Resolved]
  - Psychotic disorder [Recovered/Resolved]
